FAERS Safety Report 6836196-1 (Version None)
Quarter: 2010Q3

REPORT INFORMATION
  Report Type: 
  Country: None (occurrence: None)
  Receive Date: 20100712
  Receipt Date: 20100712
  Transmission Date: 20110219
  Serious: Yes (Death, Hospitalization)
  Sender: FDA-Public Use
  Company Number: None

PATIENT
  Sex: Female
  Weight: 62.4 kg

DRUGS (1)
  1. TOPOTECAN [Suspect]
     Dosage: 13.4 MG
     Dates: end: 20100623

REACTIONS (15)
  - AGITATION [None]
  - ANAEMIA [None]
  - ASTHENIA [None]
  - CULTURE URINE POSITIVE [None]
  - ESCHERICHIA INFECTION [None]
  - HYPERCHLORAEMIA [None]
  - HYPERNATRAEMIA [None]
  - HYPOTENSION [None]
  - MENTAL STATUS CHANGES [None]
  - ORGAN FAILURE [None]
  - RENAL FAILURE ACUTE [None]
  - RESPIRATORY FAILURE [None]
  - SEPTIC SHOCK [None]
  - THROMBOCYTOPENIA [None]
  - TRANSAMINASES INCREASED [None]
